FAERS Safety Report 15343443 (Version 1)
Quarter: 2018Q3

REPORT INFORMATION
  Report Type: Spontaneous
  Country: ZA (occurrence: ZA)
  Receive Date: 20180903
  Receipt Date: 20180903
  Transmission Date: 20181010
  Serious: Yes (Congenital Anomaly, Other)
  Sender: FDA-Public Use
  Company Number: ZA-STRIDES ARCOLAB LIMITED-2018SP007314

PATIENT

DRUGS (2)
  1. NEVIRAPINE. [Suspect]
     Active Substance: NEVIRAPINE
     Indication: PRODUCT USED FOR UNKNOWN INDICATION
     Dosage: 1.5 ML, UNKNOWN
     Route: 064
     Dates: start: 20180529
  2. TIVICAY [Suspect]
     Active Substance: DOLUTEGRAVIR SODIUM
     Indication: PRODUCT USED FOR UNKNOWN INDICATION
     Dosage: UNK
     Route: 064
     Dates: start: 20180522

REACTIONS (3)
  - Congenital umbilical hernia [Unknown]
  - Premature baby [Unknown]
  - Foetal exposure during pregnancy [Unknown]
